FAERS Safety Report 4998300-X (Version None)
Quarter: 2006Q2

REPORT INFORMATION
  Report Type: 
  Country: None (occurrence: None)
  Receive Date: 20060508
  Receipt Date: 20060428
  Transmission Date: 20061013
  Serious: Yes (Other)
  Sender: FDA-Public Use
  Company Number: 2006-04-2279

PATIENT
  Age: 55 Year
  Sex: Male

DRUGS (2)
  1. PEG-INTRON [Suspect]
     Indication: HEPATITIS C
     Dosage: UNKNOWN SUBCUTANEOUS
     Route: 058
     Dates: start: 20050902, end: 20060319
  2. RIBAVIRIN [Suspect]
     Indication: HEPATITIS C
     Dosage: UNKNOWN ORAL
     Route: 048
     Dates: start: 20050902, end: 20060319

REACTIONS (3)
  - BLINDNESS [None]
  - OPTIC NEUROPATHY [None]
  - PAPILLOEDEMA [None]
